FAERS Safety Report 17514438 (Version 1)
Quarter: 2020Q1

REPORT INFORMATION
  Report Type: Report from Study
  Country: None (occurrence: US)
  Receive Date: 20200309
  Receipt Date: 20200309
  Transmission Date: 20200409
  Serious: Yes (Other)
  Sender: FDA-Public Use
  Company Number: US-ABBVIE-20K-163-3305233-00

PATIENT
  Sex: Female

DRUGS (1)
  1. HUMIRA [Suspect]
     Active Substance: ADALIMUMAB
     Indication: RHEUMATOID ARTHRITIS
     Route: 058

REACTIONS (7)
  - Asthenia [Unknown]
  - Loss of consciousness [Unknown]
  - Dizziness [Unknown]
  - Nausea [Unknown]
  - Fatigue [Not Recovered/Not Resolved]
  - Pollakiuria [Unknown]
  - Cough [Unknown]
